FAERS Safety Report 23347444 (Version 1)
Quarter: 2023Q4

REPORT INFORMATION
  Report Type: Spontaneous
  Country: CN (occurrence: None)
  Receive Date: 20231228
  Receipt Date: 20231228
  Transmission Date: 20240109
  Serious: Yes (Other)
  Sender: FDA-Public Use
  Company Number: 2023A292151

PATIENT
  Age: 80 Year
  Sex: Male
  Weight: 58 kg

DRUGS (1)
  1. ROSUVASTATIN [Suspect]
     Active Substance: ROSUVASTATIN
     Indication: Neuritic plaques
     Route: 048
     Dates: start: 20231125, end: 20231210

REACTIONS (2)
  - Myocardial necrosis marker increased [Recovering/Resolving]
  - Renal impairment [Recovering/Resolving]

NARRATIVE: CASE EVENT DATE: 20231210
